FAERS Safety Report 5184263-3 (Version None)
Quarter: 2006Q4

REPORT INFORMATION
  Report Type: 
  Country: None (occurrence: None)
  Receive Date: 20061220
  Receipt Date: 20060222
  Transmission Date: 20070319
  Serious: No
  Sender: FDA-Public Use
  Company Number: US-GLAXOSMITHKLINE-A0594714A

PATIENT
  Age: 58 Year
  Sex: Female

DRUGS (2)
  1. NICODERM CQ [Suspect]
     Dates: start: 20060108
  2. NICODERM CQ [Suspect]

REACTIONS (5)
  - DEPRESSION [None]
  - INCREASED APPETITE [None]
  - NERVOUSNESS [None]
  - WEIGHT DECREASED [None]
  - WEIGHT INCREASED [None]
